FAERS Safety Report 7572071-5 (Version None)
Quarter: 2011Q2

REPORT INFORMATION
  Report Type: 
  Country: None (occurrence: None)
  Receive Date: 20110624
  Receipt Date: 20110609
  Transmission Date: 20111010
  Serious: No
  Sender: FDA-Public Use
  Company Number: US-B.I. PHARMACEUTICALS,INC./RIDGEFIELD-2011-BP-12995BP

PATIENT
  Age: 71 Year
  Sex: Male

DRUGS (2)
  1. PRADAXA [Suspect]
     Indication: ATRIAL FIBRILLATION
     Dosage: 150 MG
     Dates: start: 20110426, end: 20110524
  2. PRADAXA [Suspect]
     Indication: JOINT STIFFNESS

REACTIONS (5)
  - DIARRHOEA [None]
  - ANGER [None]
  - NAUSEA [None]
  - DEPRESSION [None]
  - FATIGUE [None]
